FAERS Safety Report 5761007-5 (Version None)
Quarter: 2008Q2

REPORT INFORMATION
  Report Type: 
  Country: None (occurrence: None)
  Receive Date: 20080606
  Receipt Date: 20080403
  Transmission Date: 20081010
  Serious: No
  Sender: FDA-Public Use
  Company Number: US-ASTRAZENECA-2008UW07198

PATIENT
  Age: 65 Year
  Sex: Male
  Weight: 93.2 kg

DRUGS (2)
  1. PRILOSEC [Suspect]
     Route: 048
     Dates: start: 20071201
  2. PRILOSEC OTC [Suspect]
     Route: 048
     Dates: start: 20080306, end: 20080403

REACTIONS (4)
  - DIZZINESS [None]
  - ERYTHEMA [None]
  - PRURITUS [None]
  - RASH [None]
